FAERS Safety Report 7475081-1 (Version None)
Quarter: 2011Q2

REPORT INFORMATION
  Report Type: 
  Country: None (occurrence: None)
  Receive Date: 20110512
  Receipt Date: 20110506
  Transmission Date: 20111010
  Serious: Yes (Other)
  Sender: FDA-Public Use
  Company Number: RU-NOVOPROD-324077

PATIENT
  Age: 60 Year
  Sex: Female

DRUGS (6)
  1. INSULIN [Suspect]
     Indication: TYPE 2 DIABETES MELLITUS
     Dosage: 14-0-12 IU, QD
     Route: 058
     Dates: start: 20110203, end: 20110301
  2. ENALAPRIL [Concomitant]
     Indication: HYPERTENSION
     Dosage: 5 MG, QD
     Route: 048
  3. HUMALOG [Concomitant]
     Indication: TYPE 2 DIABETES MELLITUS
     Dosage: 6+8+6 IU, QD
     Dates: start: 20110301
  4. ACTRAPID HM PENFILL [Concomitant]
     Indication: TYPE 2 DIABETES MELLITUS
     Dosage: UNK
     Dates: start: 20110203
  5. LEVEMIR [Concomitant]
     Indication: TYPE 2 DIABETES MELLITUS
     Dosage: 16 IU, QD IN THE MORNING
     Dates: start: 20110301
  6. METFORMIN HCL [Concomitant]
     Indication: TYPE 2 DIABETES MELLITUS
     Dosage: 0.85 G, QD
     Route: 048
     Dates: start: 20100801

REACTIONS (1)
  - DERMATITIS ALLERGIC [None]
